FAERS Safety Report 6600858-1 (Version None)
Quarter: 2010Q1

REPORT INFORMATION
  Report Type: 
  Country: None (occurrence: None)
  Receive Date: 20100223
  Receipt Date: 20100223
  Transmission Date: 20100710
  Serious: Yes (Other)
  Sender: FDA-Public Use
  Company Number: None

PATIENT
  Age: 83 Year
  Sex: Female
  Weight: 52.1637 kg

DRUGS (2)
  1. BONIVA [Suspect]
     Indication: OSTEOPOROSIS
     Dosage: 1 TABLET DAILY 2 TABS - 2 DAYS (MONTHS) ONLY THEN STOPPED
     Dates: start: 20090501
  2. BONIVA [Suspect]
     Indication: OSTEOPOROSIS
     Dosage: 1 TABLET DAILY 2 TABS - 2 DAYS (MONTHS) ONLY THEN STOPPED
     Dates: start: 20090615

REACTIONS (12)
  - ACTIVITIES OF DAILY LIVING IMPAIRED [None]
  - ASTHENIA [None]
  - BALANCE DISORDER [None]
  - CONFUSIONAL STATE [None]
  - DEREALISATION [None]
  - DYSPNOEA [None]
  - FEELING HOT [None]
  - HALLUCINATION [None]
  - HYPERHIDROSIS [None]
  - INSOMNIA [None]
  - PALPITATIONS [None]
  - VISION BLURRED [None]
